FAERS Safety Report 10508990 (Version 4)
Quarter: 2015Q4

REPORT INFORMATION
  Report Type: Report from Study
  Country: RU (occurrence: RU)
  Receive Date: 20141009
  Receipt Date: 20151223
  Transmission Date: 20160304
  Serious: Yes (Hospitalization, Other)
  Sender: FDA-Public Use
  Company Number: RU-PRONOVA-140102

PATIENT
  Age: 56 Year
  Sex: Male

DRUGS (16)
  1. DETRALEX [Concomitant]
     Active Substance: DIOSMIN\HESPERIDIN
     Indication: WOUND
     Route: 048
  2. ENALAPRIL [Concomitant]
     Active Substance: ENALAPRIL
     Dosage: 2.5 MG, BID
     Route: 048
     Dates: start: 20140328
  3. ACETYLSALICYLIC ACID [Concomitant]
     Active Substance: ASPIRIN
     Dosage: 100 MG, QD
     Route: 048
     Dates: start: 2014
  4. TROMETHAMINE. [Concomitant]
     Active Substance: TROMETHAMINE
     Dosage: UNK
     Dates: start: 20130626
  5. BISOPROLOL [Concomitant]
     Active Substance: BISOPROLOL
     Indication: MYOCARDIAL INFARCTION
     Route: 048
  6. DICLOFENAC [Concomitant]
     Active Substance: DICLOFENAC
     Route: 030
  7. ENALAPRIL [Concomitant]
     Active Substance: ENALAPRIL
     Dosage: 40 MG, QD
     Route: 048
     Dates: start: 20140318, end: 20140327
  8. BISOPROLOL [Concomitant]
     Active Substance: BISOPROLOL
     Indication: CORONARY ARTERY DISEASE
  9. CLOPIDOGREL [Concomitant]
     Active Substance: CLOPIDOGREL BISULFATE
     Indication: MYOCARDIAL INFARCTION
     Route: 048
  10. CEFUROXIME. [Concomitant]
     Active Substance: CEFUROXIME
     Indication: ANTIBIOTIC PROPHYLAXIS
     Route: 051
     Dates: start: 20130519
  11. ATORVASTATIN [Concomitant]
     Active Substance: ATORVASTATIN
     Indication: CORONARY ARTERY DISEASE
     Dosage: 18MAR2014 TO 26MAR2014 40MG ONCE DAILY FOR MYOCARDIAL INFARCTION
     Route: 048
     Dates: start: 20130605
  12. AMLODIPINE BESILATE + VALSARTAN [Concomitant]
     Indication: MYOCARDIAL INFARCTION
     Dosage: 160/5/12.5MG ONCE DAILY
     Route: 048
  13. ATORVASTATIN [Concomitant]
     Active Substance: ATORVASTATIN
     Indication: MYOCARDIAL INFARCTION
     Dosage: 20 MG, QD
     Route: 048
     Dates: start: 2014
  14. CEFUROXIME. [Concomitant]
     Active Substance: CEFUROXIME
     Indication: PROPHYLAXIS
     Route: 042
     Dates: start: 20130522
  15. OMEGA-3-ACID ETHYL ESTERS. [Suspect]
     Active Substance: OMEGA-3-ACID ETHYL ESTERS
     Indication: MYOCARDIAL INFARCTION
     Route: 048
     Dates: start: 20130812
  16. ACETYLSALICYLIC ACID [Concomitant]
     Active Substance: ASPIRIN
     Indication: MYOCARDIAL INFARCTION
     Dosage: 19MAY2014 TO 14JUN2014 AT 125MG ONCE DAILY
     Route: 048
     Dates: start: 20130519

REACTIONS (3)
  - Atrial fibrillation [Recovered/Resolved]
  - Brachiocephalic artery occlusion [Recovered/Resolved with Sequelae]
  - Aortic arteriosclerosis [Recovered/Resolved with Sequelae]

NARRATIVE: CASE EVENT DATE: 20140128
